FAERS Safety Report 9548828 (Version 1)
Quarter: 2013Q3

REPORT INFORMATION
  Report Type: Spontaneous
  Country: US (occurrence: None)
  Receive Date: 20130923
  Receipt Date: 20130923
  Transmission Date: 20140515
  Serious: Yes (Hospitalization, Disabling)
  Sender: FDA-Public Use
  Company Number: None

PATIENT
  Age: 38 Year
  Sex: Female
  Weight: 68.04 kg

DRUGS (1)
  1. MIRENA IUD [Suspect]

REACTIONS (39)
  - Allergic sinusitis [None]
  - Fatigue [None]
  - Mental disorder [None]
  - Hypertension [None]
  - Anger [None]
  - Muscle spasms [None]
  - Acne [None]
  - Headache [None]
  - Migraine [None]
  - Anxiety [None]
  - Weight increased [None]
  - Autoimmune thyroiditis [None]
  - Blood cholesterol increased [None]
  - Dental caries [None]
  - Bruxism [None]
  - Insomnia [None]
  - Fibrocystic breast disease [None]
  - Condition aggravated [None]
  - Urinary tract infection [None]
  - Alopecia [None]
  - Hair growth abnormal [None]
  - Seborrhoea [None]
  - Oropharyngeal pain [None]
  - Dry eye [None]
  - Corneal dystrophy [None]
  - Palpitations [None]
  - Chest pain [None]
  - Dyspepsia [None]
  - Pain [None]
  - Hiatus hernia [None]
  - Gastritis [None]
  - Lymphadenopathy [None]
  - Lymph node pain [None]
  - Arthralgia [None]
  - Arthralgia [None]
  - Pain in extremity [None]
  - Pain in extremity [None]
  - Onychomycosis [None]
  - Panic attack [None]
